FAERS Safety Report 15663351 (Version 1)
Quarter: 2018Q4

REPORT INFORMATION
  Report Type: Spontaneous
  Country: US (occurrence: US)
  Receive Date: 20181128
  Receipt Date: 20181128
  Transmission Date: 20190205
  Serious: No
  Sender: FDA-Public Use
  Company Number: US-ASTRAZENECA-2018SF53103

PATIENT
  Sex: Female

DRUGS (3)
  1. DALIRESP [Suspect]
     Active Substance: ROFLUMILAST
     Dosage: LOWERED TO 250 UG FOR 6 WEEKS
     Route: 048
  2. DALIRESP [Suspect]
     Active Substance: ROFLUMILAST
     Dosage: 500 UG
     Route: 048
  3. DALIRESP [Suspect]
     Active Substance: ROFLUMILAST
     Dosage: 500 UG
     Route: 048

REACTIONS (6)
  - Adverse drug reaction [Unknown]
  - Vomiting [Unknown]
  - Off label use [Unknown]
  - Feeling abnormal [Unknown]
  - Headache [Unknown]
  - Memory impairment [Unknown]
